FAERS Safety Report 9041222 (Version 1)
Quarter: 2013Q1

REPORT INFORMATION
  Report Type: Spontaneous
  Country: US (occurrence: None)
  Receive Date: 20130123
  Receipt Date: 20130123
  Transmission Date: 20140127
  Serious: No
  Sender: FDA-Public Use
  Company Number: None

PATIENT
  Sex: 0

DRUGS (1)
  1. MEFLOQUINE [Suspect]

REACTIONS (14)
  - Tinnitus [None]
  - Vomiting [None]
  - Diarrhoea [None]
  - Shock [None]
  - Weight decreased [None]
  - Anxiety [None]
  - Sleep disorder [None]
  - Pyrexia [None]
  - Chills [None]
  - Pain [None]
  - Vertigo [None]
  - Hallucination [None]
  - Formication [None]
  - Hypersomnia [None]
